FAERS Safety Report 10884719 (Version 1)
Quarter: 2015Q1

REPORT INFORMATION
  Report Type: Spontaneous
  Country: US (occurrence: None)
  Receive Date: 20150227
  Receipt Date: 20150227
  Transmission Date: 20150721
  Serious: Yes (Disabling)
  Sender: FDA-Public Use
  Company Number: None

PATIENT
  Age: 28 Year
  Sex: Male
  Weight: 190.51 kg

DRUGS (8)
  1. MAGNESIUM [Concomitant]
     Active Substance: MAGNESIUM
  2. IBUPROPHEN [Concomitant]
     Active Substance: IBUPROFEN
  3. LEVOFLOXACIN 500MG [Suspect]
     Active Substance: LEVOFLOXACIN
     Indication: EAR INFECTION
     Route: 048
     Dates: start: 20150214, end: 20150217
  4. POTASSIUM [Concomitant]
     Active Substance: POTASSIUM
  5. TYLENOL WITH CODEINE [Concomitant]
     Active Substance: ACETAMINOPHEN\CODEINE PHOSPHATE
  6. BI-PAP MACHINE [Concomitant]
  7. DIAZEPAM. [Concomitant]
     Active Substance: DIAZEPAM
  8. MENTELUKAST [Concomitant]

REACTIONS (3)
  - Muscle spasms [None]
  - Insomnia [None]
  - Muscle twitching [None]

NARRATIVE: CASE EVENT DATE: 20150213
